FAERS Safety Report 18755281 (Version 1)
Quarter: 2021Q1

REPORT INFORMATION
  Report Type: Spontaneous
  Country: US (occurrence: US)
  Receive Date: 20210118
  Receipt Date: 20210118
  Transmission Date: 20210419
  Serious: Yes (Hospitalization, Other)
  Sender: FDA-Public Use
  Company Number: None

PATIENT
  Age: 70 Year
  Sex: Female
  Weight: 87.7 kg

DRUGS (4)
  1. REMDESIVIR. [Concomitant]
     Active Substance: REMDESIVIR
     Dates: start: 20201210, end: 20201215
  2. CEFTRIAXONE. [Concomitant]
     Active Substance: CEFTRIAXONE
     Dates: start: 20201213, end: 20201215
  3. DECADRON [Concomitant]
     Active Substance: DEXAMETHASONE
     Dates: start: 20201212, end: 20210103
  4. BARICITINIB. [Suspect]
     Active Substance: BARICITINIB
     Indication: COVID-19
     Route: 048
     Dates: start: 20201213, end: 20201218

REACTIONS (7)
  - Klebsiella test positive [None]
  - Candida test positive [None]
  - Encephalopathy [None]
  - Infection [None]
  - Stenotrophomonas test positive [None]
  - Bacteraemia [None]
  - Dysphagia [None]

NARRATIVE: CASE EVENT DATE: 20201218
